FAERS Safety Report 8789411 (Version 1)
Quarter: 2012Q4

REPORT INFORMATION
  Report Type: Spontaneous
  Country: US (occurrence: None)
  Receive Date: 20120905
  Receipt Date: 20120905
  Transmission Date: 20130627
  Serious: Yes (Other)
  Sender: FDA-Public Use
  Company Number: 2012P1054843

PATIENT
  Age: 45 Year
  Sex: Male

DRUGS (4)
  1. LEVETIRACETAM [Suspect]
     Indication: CONVULSION PROPHYLAXIS
     Dates: start: 201104, end: 2011
  2. KEPPRA [Suspect]
     Indication: CONVULSION PROPHYLAXIS
     Dates: start: 201105, end: 201105
  3. DEXAMETHASONE [Concomitant]
  4. TEMOZOLOMIDE [Concomitant]

REACTIONS (3)
  - Convulsion [None]
  - Renal failure acute [None]
  - Tubulointerstitial nephritis [None]
